FAERS Safety Report 17949152 (Version 1)
Quarter: 2020Q2

REPORT INFORMATION
  Report Type: Spontaneous
  Country: US (occurrence: US)
  Receive Date: 20200625
  Receipt Date: 20200625
  Transmission Date: 20200714
  Serious: No
  Sender: FDA-Public Use
  Company Number: US-ROCHE-2531577

PATIENT
  Sex: Male
  Weight: 79.45 kg

DRUGS (1)
  1. KLONOPIN [Suspect]
     Active Substance: CLONAZEPAM
     Indication: ANXIETY
     Route: 065

REACTIONS (8)
  - Withdrawal syndrome [Unknown]
  - Muscle disorder [Unknown]
  - Foreign body sensation in eyes [Unknown]
  - Feeling abnormal [Unknown]
  - Intentional product misuse [Unknown]
  - Off label use [Unknown]
  - Hyperhidrosis [Unknown]
  - Malaise [Unknown]
